FAERS Safety Report 23257975 (Version 1)
Quarter: 2023Q4

REPORT INFORMATION
  Report Type: Report from Study
  Country: US (occurrence: US)
  Receive Date: 20231204
  Receipt Date: 20231204
  Transmission Date: 20240109
  Serious: No
  Sender: FDA-Public Use
  Company Number: US-ALXN-A202312356

PATIENT
  Sex: Female

DRUGS (1)
  1. SOLIRIS [Suspect]
     Active Substance: ECULIZUMAB
     Indication: Neuromyelitis optica spectrum disorder
     Dosage: UNK UNK, Q2W
     Route: 065

REACTIONS (3)
  - Generalised oedema [Recovered/Resolved]
  - Swelling face [Recovered/Resolved]
  - Catheter site pain [Unknown]
